FAERS Safety Report 21556460 (Version 2)
Quarter: 2022Q4

REPORT INFORMATION
  Report Type: Spontaneous
  Country: IT (occurrence: IT)
  Receive Date: 20221104
  Receipt Date: 20221209
  Transmission Date: 20230113
  Serious: Yes (Life-Threatening, Hospitalization, Other)
  Sender: FDA-Public Use
  Company Number: IT-UCBSA-2022054251

PATIENT
  Age: 5 Year
  Sex: Male

DRUGS (22)
  1. PHENYTOIN [Suspect]
     Active Substance: PHENYTOIN
     Indication: Epilepsy
     Dosage: UNK
     Route: 065
  2. PHENYTOIN [Suspect]
     Active Substance: PHENYTOIN
     Indication: Febrile infection-related epilepsy syndrome
  3. PHENYTOIN [Suspect]
     Active Substance: PHENYTOIN
     Indication: Partial seizures
  4. PHENOBARBITAL [Suspect]
     Active Substance: PHENOBARBITAL
     Indication: Epilepsy
     Dosage: UNK
     Route: 065
  5. PHENOBARBITAL [Suspect]
     Active Substance: PHENOBARBITAL
     Indication: Febrile infection-related epilepsy syndrome
  6. PHENOBARBITAL [Suspect]
     Active Substance: PHENOBARBITAL
     Indication: Partial seizures
  7. KEPPRA [Suspect]
     Active Substance: LEVETIRACETAM
     Indication: Epilepsy
     Dosage: UNK, LEVETIRACETAM UP TO 50 MG/KG
     Route: 065
  8. KEPPRA [Suspect]
     Active Substance: LEVETIRACETAM
     Indication: Immune-mediated encephalitis
  9. KEPPRA [Suspect]
     Active Substance: LEVETIRACETAM
     Indication: Febrile infection-related epilepsy syndrome
  10. KEPPRA [Suspect]
     Active Substance: LEVETIRACETAM
     Indication: Partial seizures
  11. THIOPENTAL [Suspect]
     Active Substance: THIOPENTAL
     Indication: Epilepsy
     Dosage: UNK
     Route: 065
  12. VALPROATE [Suspect]
     Active Substance: VALPROIC ACID
     Indication: Epilepsy
     Dosage: VALPROATE UP TO 30 MG/KG
     Route: 065
  13. VALPROATE [Suspect]
     Active Substance: VALPROIC ACID
     Indication: Febrile infection-related epilepsy syndrome
  14. VALPROATE [Suspect]
     Active Substance: VALPROIC ACID
     Indication: Immune-mediated encephalitis
  15. VALPROATE [Suspect]
     Active Substance: VALPROIC ACID
     Indication: Partial seizures
  16. METHYLPREDNISOLONE [Suspect]
     Active Substance: METHYLPREDNISOLONE
     Indication: Encephalopathy
     Dosage: 30 MG/KG, 1X/DAY FOR 5 DAYS
     Route: 042
  17. METHYLPREDNISOLONE [Suspect]
     Active Substance: METHYLPREDNISOLONE
     Indication: Febrile infection-related epilepsy syndrome
  18. METHYLPREDNISOLONE [Suspect]
     Active Substance: METHYLPREDNISOLONE
     Indication: Immune-mediated encephalitis
  19. TOPIRAMATE [Concomitant]
     Active Substance: TOPIRAMATE
     Indication: Encephalopathy
     Dosage: UNK
     Route: 065
  20. MIDAZOLAM [Concomitant]
     Active Substance: MIDAZOLAM
     Indication: Encephalopathy
     Dosage: UNK
     Route: 065
  21. MIDAZOLAM [Concomitant]
     Active Substance: MIDAZOLAM
     Indication: Sedative therapy
  22. METHYLPREDNISOLONE [Concomitant]
     Active Substance: METHYLPREDNISOLONE
     Indication: Encephalopathy
     Dosage: UNK
     Route: 065

REACTIONS (15)
  - Drug ineffective [Unknown]
  - Cerebral atrophy [Recovered/Resolved]
  - Partial seizures [Recovering/Resolving]
  - Hallucination [Unknown]
  - Hemiparesis [Recovered/Resolved]
  - Multiple-drug resistance [Unknown]
  - Behaviour disorder [Recovering/Resolving]
  - Language disorder [Recovering/Resolving]
  - Aphasia [Unknown]
  - Asthenia [Unknown]
  - Echopraxia [Unknown]
  - Psychomotor hyperactivity [Unknown]
  - Inappropriate affect [Unknown]
  - Insomnia [Unknown]
  - Off label use [Unknown]
